FAERS Safety Report 5737359-9 (Version None)
Quarter: 2008Q2

REPORT INFORMATION
  Report Type: 
  Country: None (occurrence: None)
  Receive Date: 20080514
  Receipt Date: 20080407
  Transmission Date: 20081010
  Serious: No
  Sender: FDA-Public Use
  Company Number: US-BRISTOL-MYERS SQUIBB COMPANY-14016125

PATIENT
  Age: 46 Year
  Sex: Female

DRUGS (3)
  1. IXEMPRA KIT [Suspect]
     Indication: BREAST CANCER
     Dosage: 80 MG * 3 ,THERAPY DATES:06NOV07;26NOV07;17DEC07.
     Route: 042
     Dates: start: 20071106
  2. HERCEPTIN [Concomitant]
     Dosage: 1DF=165 WITH NO UNITS
  3. ZOMETA [Concomitant]

REACTIONS (1)
  - SENSATION OF HEAVINESS [None]
